FAERS Safety Report 23157480 (Version 2)
Quarter: 2023Q4

REPORT INFORMATION
  Report Type: Report from Study
  Country: US (occurrence: US)
  Receive Date: 20231108
  Receipt Date: 20231109
  Transmission Date: 20240109
  Serious: Yes (Death, Hospitalization, Other)
  Sender: FDA-Public Use
  Company Number: US-ABBVIE-5485458

PATIENT
  Sex: Female

DRUGS (1)
  1. HUMIRA [Suspect]
     Active Substance: ADALIMUMAB
     Indication: Product used for unknown indication
     Dosage: CITRATE FREE?STRENGTH:40MG
     Route: 058
     Dates: start: 2012

REACTIONS (9)
  - Death [Fatal]
  - End stage renal disease [Unknown]
  - Coma [Unknown]
  - Fall [Unknown]
  - Pain [Unknown]
  - Feeling abnormal [Unknown]
  - Hospitalisation [Unknown]
  - Restlessness [Unknown]
  - Osteoarthritis [Unknown]
